FAERS Safety Report 6167366-6 (Version None)
Quarter: 2009Q2

REPORT INFORMATION
  Report Type: 
  Country: None (occurrence: None)
  Receive Date: 20090424
  Receipt Date: 20090417
  Transmission Date: 20091009
  Serious: No
  Sender: FDA-Public Use
  Company Number: US-JNJFOC-20090404908

PATIENT
  Sex: Female
  Weight: 86.64 kg

DRUGS (4)
  1. DURAGESIC-100 [Suspect]
     Indication: NECROSIS ISCHAEMIC
     Route: 062
  2. LASIX [Concomitant]
     Indication: OEDEMA
     Dosage: START DATE 1950'S
     Route: 048
  3. K-DUR [Concomitant]
     Indication: MINERAL SUPPLEMENTATION
     Dosage: START DATE 1950'S
     Route: 048
  4. CARDIZEM [Concomitant]
     Indication: HYPERTENSION
     Route: 048

REACTIONS (2)
  - DRUG ADMINISTERED AT INAPPROPRIATE SITE [None]
  - HYPOKINESIA [None]
